FAERS Safety Report 18681751 (Version 1)
Quarter: 2020Q4

REPORT INFORMATION
  Report Type: Spontaneous
  Country: US (occurrence: US)
  Receive Date: 20201229
  Receipt Date: 20201229
  Transmission Date: 20210114
  Serious: Yes (Hospitalization, Other)
  Sender: FDA-Public Use
  Company Number: US-PURDUE-USA-2020-0190951

PATIENT
  Sex: Male
  Weight: 201 kg

DRUGS (25)
  1. LORAZEPAM. [Concomitant]
     Active Substance: LORAZEPAM
     Indication: ANXIETY
     Dosage: 1 MG, BID
     Route: 048
  2. FLUOXETINE [Concomitant]
     Active Substance: FLUOXETINE HYDROCHLORIDE
     Dosage: 20 MG, QD PRN
  3. HYDROXYZINE [Concomitant]
     Active Substance: HYDROXYZINE HYDROCHLORIDE
     Indication: ANXIETY
     Dosage: 50 MG, PRN
  4. ASPIRIN. [Concomitant]
     Active Substance: ASPIRIN
     Dosage: 81 MG, UNK
     Route: 048
  5. PAXIL [Concomitant]
     Active Substance: PAROXETINE HYDROCHLORIDE
     Dosage: 20 MG, UNK
     Route: 048
  6. VICODIN [Suspect]
     Active Substance: ACETAMINOPHEN\HYDROCODONE BITARTRATE
     Indication: PAIN MANAGEMENT
     Dosage: UNKNOWN
     Route: 065
  7. HYDROCODONE BITARTRATE AND ACETAMINOPHEN [Suspect]
     Active Substance: ACETAMINOPHEN\HYDROCODONE BITARTRATE
     Indication: PAIN MANAGEMENT
     Dosage: 500 MG, BID
     Route: 048
  8. TRAMADOL. [Suspect]
     Active Substance: TRAMADOL
     Indication: PAIN MANAGEMENT
     Dosage: UNKNOWN
     Route: 065
  9. FLEXERIL [Suspect]
     Active Substance: CYCLOBENZAPRINE HYDROCHLORIDE
     Indication: PAIN
     Dosage: 10 MG, BID PRN
     Route: 048
  10. ATIVAN [Concomitant]
     Active Substance: LORAZEPAM
     Indication: MENTAL DISORDER
     Dosage: UNKNOWN
     Route: 065
  11. OMEPRAZOL                          /00661201/ [Concomitant]
     Active Substance: OMEPRAZOLE
     Dosage: 20 MG, DAILY
  12. FENTANYL. [Suspect]
     Active Substance: FENTANYL
     Indication: PAIN MANAGEMENT
     Dosage: UNKNOWN
     Route: 065
  13. PROZAC [Concomitant]
     Active Substance: FLUOXETINE HYDROCHLORIDE
     Indication: DEPRESSION
  14. ROBAXIN [Concomitant]
     Active Substance: METHOCARBAMOL
     Indication: MUSCLE SPASMS
     Dosage: 750 MG, BID
     Route: 048
  15. TRAZODONE [Concomitant]
     Active Substance: TRAZODONE HYDROCHLORIDE
     Indication: INSOMNIA
     Dosage: 100 MG, QD PRN
  16. LIPITOR [Concomitant]
     Active Substance: ATORVASTATIN CALCIUM
  17. MELOXICAM. [Concomitant]
     Active Substance: MELOXICAM
     Dosage: 15 MG, UNK
  18. VANCOMYCIN [Concomitant]
     Active Substance: VANCOMYCIN
  19. PRILOSEC [Concomitant]
     Active Substance: OMEPRAZOLE MAGNESIUM
  20. OXYCODONE/ ACETAMINOPHEN TABLETS [Suspect]
     Active Substance: ACETAMINOPHEN\OXYCODONE HYDROCHLORIDE
     Indication: PAIN MANAGEMENT
     Dosage: UNKNOWN
     Route: 048
  21. NORCO [Suspect]
     Active Substance: ACETAMINOPHEN\HYDROCODONE BITARTRATE
     Indication: PAIN
     Dosage: 325 MG, Q6H PRN
     Route: 048
  22. CODEINE [Suspect]
     Active Substance: CODEINE
     Indication: PAIN
     Dosage: UNKNOWN
     Route: 065
  23. PROZAC [Concomitant]
     Active Substance: FLUOXETINE HYDROCHLORIDE
     Indication: MENTAL DISORDER
     Dosage: UNKNOWN
     Route: 065
  24. GABAPENTIN. [Concomitant]
     Active Substance: GABAPENTIN
     Dosage: 100 MG, TID
  25. TRAZODONE [Concomitant]
     Active Substance: TRAZODONE HYDROCHLORIDE
     Indication: DEPRESSION

REACTIONS (42)
  - Abdominal operation [Unknown]
  - Pain [Unknown]
  - Metabolic acidosis [Unknown]
  - Overdose [Unknown]
  - Acute kidney injury [Unknown]
  - Patella fracture [Unknown]
  - Somnolence [Unknown]
  - Amnesia [Unknown]
  - Femur fracture [Unknown]
  - Post-traumatic stress disorder [Unknown]
  - Anaemia [Unknown]
  - Panic attack [Unknown]
  - Fatigue [Unknown]
  - Disturbance in attention [Unknown]
  - Systemic lupus erythematosus [Unknown]
  - Road traffic accident [Unknown]
  - Cardiomegaly [Unknown]
  - Peripheral swelling [Unknown]
  - Bipolar disorder [Unknown]
  - Anxiety [Unknown]
  - Asthenia [Unknown]
  - Gait disturbance [Unknown]
  - Drug dependence [Unknown]
  - Drug abuse [Unknown]
  - Type 2 diabetes mellitus [Unknown]
  - Drug withdrawal syndrome [Unknown]
  - Psychomotor retardation [None]
  - Back pain [Unknown]
  - Intervertebral disc degeneration [Unknown]
  - Impaired driving ability [Unknown]
  - Aphasia [Unknown]
  - Insomnia [Unknown]
  - Stress [Unknown]
  - Sleep disorder [Unknown]
  - Depressed mood [Unknown]
  - Spinal operation [Unknown]
  - Major depression [Unknown]
  - Suicidal ideation [Unknown]
  - Lower limb fracture [Unknown]
  - Mental status changes [Unknown]
  - Irritability [Unknown]
  - Arthritis [Unknown]

NARRATIVE: CASE EVENT DATE: 2006
